FAERS Safety Report 8045279-2 (Version None)
Quarter: 2012Q1

REPORT INFORMATION
  Report Type: 
  Country: None (occurrence: None)
  Receive Date: 20120113
  Receipt Date: 20120109
  Transmission Date: 20120608
  Serious: Yes (Other)
  Sender: FDA-Public Use
  Company Number: CA-PFIZER INC-2012006102

PATIENT
  Age: 77 Year
  Sex: Male

DRUGS (1)
  1. DETROL LA [Suspect]
     Indication: HYPERTONIC BLADDER
     Dosage: UNK

REACTIONS (3)
  - DEMENTIA [None]
  - BALANCE DISORDER [None]
  - CONFUSIONAL STATE [None]
